FAERS Safety Report 9332832 (Version 4)
Quarter: 2014Q2

REPORT INFORMATION
  Report Type: Spontaneous
  Country: GB (occurrence: GB)
  Receive Date: 20130606
  Receipt Date: 20140613
  Transmission Date: 20141212
  Serious: Yes (Hospitalization)
  Sender: FDA-Public Use
  Company Number: GB-PFIZER INC-2013168055

PATIENT
  Age: 72 Year
  Sex: Female

DRUGS (3)
  1. IRINOTECAN HCL [Suspect]
     Dosage: 300MG/15ML
     Route: 042
     Dates: start: 20130516
  2. LEVOLEUCOVORIN CALCIUM [Suspect]
     Route: 065
     Dates: start: 20130516
  3. GLUCOSE 5% [Suspect]
     Indication: MEDICATION DILUTION
     Dosage: 250 ML, 1 BAG FOR MEDICATION DILUTION
     Route: 042
     Dates: start: 20130516

REACTIONS (5)
  - Infection [Recovered/Resolved]
  - Hypotension [Recovered/Resolved]
  - Pyrexia [Recovered/Resolved]
  - Malaise [Recovered/Resolved]
  - Chills [Recovered/Resolved]
